FAERS Safety Report 5989727-8 (Version None)
Quarter: 2008Q4

REPORT INFORMATION
  Report Type: 
  Country: None (occurrence: None)
  Receive Date: 20081208
  Receipt Date: 20081125
  Transmission Date: 20090506
  Serious: Yes (Hospitalization)
  Sender: FDA-Public Use
  Company Number: 2008AL012010

PATIENT
  Age: 3 Year
  Sex: Female

DRUGS (2)
  1. CARBAMAZEPINE [Suspect]
     Indication: PARTIAL SEIZURES
     Dosage: 100 MG;BID
  2. CLARITHROMYCIN [Concomitant]

REACTIONS (6)
  - ACUTE SINUSITIS [None]
  - ATAXIA [None]
  - DRUG INTERACTION [None]
  - DRUG TOXICITY [None]
  - OVERDOSE [None]
  - VOMITING [None]
